FAERS Safety Report 5528660-2 (Version None)
Quarter: 2007Q4

REPORT INFORMATION
  Report Type: 
  Country: None (occurrence: None)
  Receive Date: 20071129
  Receipt Date: 20071127
  Transmission Date: 20080405
  Serious: Yes (Other)
  Sender: FDA-Public Use
  Company Number: PHBS2007NL19942

PATIENT
  Sex: Female

DRUGS (1)
  1. TERBINAFINE HYDROCHLORIDE [Suspect]
     Indication: FUNGAL INFECTION
     Dosage: 250 MG, QD
     Route: 065
     Dates: start: 20070101

REACTIONS (2)
  - DRUG EXPOSURE BEFORE PREGNANCY [None]
  - INDUCED LABOUR [None]
